FAERS Safety Report 5935666-8 (Version None)
Quarter: 2008Q4

REPORT INFORMATION
  Report Type: 
  Country: None (occurrence: None)
  Receive Date: 20081029
  Receipt Date: 20081029
  Transmission Date: 20090506
  Serious: Yes (Other)
  Sender: FDA-Public Use
  Company Number: None

PATIENT
  Sex: Female
  Weight: 72.5755 kg

DRUGS (1)
  1. BONIVA [Suspect]
     Indication: OSTEOPENIA
     Dosage: 1 TABLET ONCE MONTHLY PO
     Route: 048
     Dates: start: 20050825, end: 20081005

REACTIONS (2)
  - HEART RATE IRREGULAR [None]
  - PRESYNCOPE [None]
